FAERS Safety Report 4801239-3 (Version None)
Quarter: 2005Q4

REPORT INFORMATION
  Report Type: 
  Country: None (occurrence: None)
  Receive Date: 20051012
  Receipt Date: 20050930
  Transmission Date: 20060501
  Serious: Yes (Hospitalization)
  Sender: FDA-Public Use
  Company Number: 2005005323

PATIENT
  Sex: Male
  Weight: 86 kg

DRUGS (13)
  1. LINEZOLID TABLET (LINEZOLID) [Suspect]
     Indication: GRAFT INFECTION
     Dosage: 1200 MG (600 MG, 2 IN 1 D), ORAL
     Route: 048
     Dates: start: 20040813, end: 20041125
  2. BELOC (METOPROLOL TARTRATE) [Concomitant]
  3. TOREM (TORASEMIDE) [Concomitant]
  4. GLUCOPHAGE [Concomitant]
  5. DIFLUCAN [Concomitant]
  6. MAGNESIOCARD (MATNESIUM ASPARTATE HYDROCHLORIDE) [Concomitant]
  7. MARCUMAR [Concomitant]
  8. AVELOX [Concomitant]
  9. LESCOL [Concomitant]
  10. COVERSUM (PERINDOPRIL) [Concomitant]
  11. DOMPERIDONE (DOMPERIDONE) [Concomitant]
  12. PANTOPRAZOLE SODIUM [Concomitant]
  13. ZESTRIL [Concomitant]

REACTIONS (2)
  - APLASIA PURE RED CELL [None]
  - NORMOCHROMIC NORMOCYTIC ANAEMIA [None]
